FAERS Safety Report 20078784 (Version 1)
Quarter: 2021Q4

REPORT INFORMATION
  Report Type: Spontaneous
  Country: US (occurrence: US)
  Receive Date: 20211117
  Receipt Date: 20211117
  Transmission Date: 20220303
  Serious: No
  Sender: FDA-Public Use
  Company Number: US-AMGEN-USASP2021179836

PATIENT
  Sex: Male

DRUGS (16)
  1. OTEZLA [Suspect]
     Active Substance: APREMILAST
     Indication: Dermatitis atopic
     Dosage: UNK (28 DAYS STARTER PACK) AS DIRECTED
     Route: 048
  2. OTEZLA [Suspect]
     Active Substance: APREMILAST
     Indication: Off label use
  3. ATORVASTATIN [Concomitant]
     Active Substance: ATORVASTATIN
     Dosage: UNK
  4. BETAMETH [BETAMETHASONE SODIUM PHOSPHATE] [Concomitant]
     Dosage: UNK
  5. BREO ELLIPTA [Concomitant]
     Active Substance: FLUTICASONE FUROATE\VILANTEROL TRIFENATATE
     Dosage: UNK
  6. CALCIPROTECT [Concomitant]
     Dosage: UNK
  7. DULOXETINE [Concomitant]
     Active Substance: DULOXETINE
     Dosage: UNK
  8. NAPROXEN [Concomitant]
     Active Substance: NAPROXEN
     Dosage: UNK
  9. OXYCODONE [Concomitant]
     Active Substance: OXYCODONE
     Dosage: UNK
  10. PANTOPRAZOLE [Concomitant]
     Active Substance: PANTOPRAZOLE
     Dosage: UNK
  11. PROTOPIC [Concomitant]
     Active Substance: TACROLIMUS
     Dosage: UNK
  12. PULMOCORTISON INY [Concomitant]
     Dosage: UNK
  13. SEREVENT DISKUS [Concomitant]
     Active Substance: SALMETEROL XINAFOATE
     Dosage: UNK
  14. TRAMADOL [Concomitant]
     Active Substance: TRAMADOL
     Dosage: UNK
  15. TRAZODONE [Concomitant]
     Active Substance: TRAZODONE HYDROCHLORIDE
     Dosage: UNK
  16. ZAFIRLUKAST [Concomitant]
     Active Substance: ZAFIRLUKAST
     Dosage: UNK

REACTIONS (2)
  - Off label use [Unknown]
  - Dermatitis atopic [Recovered/Resolved]
